FAERS Safety Report 8713139 (Version 2)
Quarter: 2013Q2

REPORT INFORMATION
  Report Type: Spontaneous
  Country: PT (occurrence: PT)
  Receive Date: 20120808
  Receipt Date: 20130531
  Transmission Date: 20140414
  Serious: Yes (Other)
  Sender: FDA-Public Use
  Company Number: PT-ROCHE-1092517

PATIENT
  Age: 42 Year
  Sex: Male
  Weight: 85 kg

DRUGS (4)
  1. ROACTEMRA [Suspect]
     Indication: RHEUMATOID ARTHRITIS
     Dosage: STOPPED THERAPY IN 2012
     Route: 042
     Dates: start: 20120503
  2. ROACTEMRA [Suspect]
     Route: 042
     Dates: start: 20120531
  3. ROACTEMRA [Suspect]
     Route: 042
     Dates: start: 20120719
  4. LEPICORTINOLO [Concomitant]
     Route: 048
     Dates: start: 20120503

REACTIONS (2)
  - Stress cardiomyopathy [Not Recovered/Not Resolved]
  - Hypertension [Recovered/Resolved]
